FAERS Safety Report 8053611-9 (Version None)
Quarter: 2012Q1

REPORT INFORMATION
  Report Type: 
  Country: None (occurrence: None)
  Receive Date: 20120118
  Receipt Date: 20120112
  Transmission Date: 20120608
  Serious: Yes (Hospitalization, Other)
  Sender: FDA-Public Use
  Company Number: US-MERCK-1010USA01934

PATIENT
  Age: 65 Year
  Sex: Female
  Weight: 65 kg

DRUGS (10)
  1. FOSAMAX [Suspect]
     Route: 048
     Dates: start: 20081029, end: 20100601
  2. ACTONEL [Suspect]
     Indication: OSTEOPOROSIS
     Route: 065
     Dates: start: 20080717, end: 20081029
  3. FOSAMAX [Suspect]
     Indication: OSTEOPOROSIS
     Route: 048
     Dates: start: 19990907, end: 20080717
  4. FOSAMAX [Suspect]
     Indication: OSTEOPENIA
     Route: 048
     Dates: start: 19990907, end: 20080717
  5. FOSAMAX [Suspect]
     Route: 048
     Dates: start: 20081029, end: 20100601
  6. FOSAMAX [Suspect]
     Route: 048
     Dates: start: 20000501, end: 20010401
  7. ACTONEL [Suspect]
     Indication: OSTEOPENIA
     Route: 065
     Dates: start: 20080717, end: 20081029
  8. ALENDRONATE SODIUM [Suspect]
     Indication: OSTEOPOROSIS
     Route: 048
     Dates: start: 20081030, end: 20100617
  9. ALENDRONATE SODIUM [Suspect]
     Indication: OSTEOPENIA
     Route: 048
     Dates: start: 20081030, end: 20100617
  10. FOSAMAX [Suspect]
     Route: 048
     Dates: start: 20000501, end: 20010401

REACTIONS (42)
  - MEMORY IMPAIRMENT [None]
  - RENAL CYST [None]
  - MENSTRUAL DISORDER [None]
  - LIGAMENT SPRAIN [None]
  - FLUID RETENTION [None]
  - POLLAKIURIA [None]
  - ATRIOVENTRICULAR BLOCK FIRST DEGREE [None]
  - VOMITING [None]
  - ARTHROPATHY [None]
  - DIABETIC RETINOPATHY [None]
  - URINARY TRACT INFECTION [None]
  - SPINAL OSTEOARTHRITIS [None]
  - BLOOD CHOLESTEROL INCREASED [None]
  - HAEMORRHAGIC ANAEMIA [None]
  - ANAEMIA POSTOPERATIVE [None]
  - BLOOD PRESSURE DECREASED [None]
  - PANCREATITIS ACUTE [None]
  - PULMONARY HYPERTENSION [None]
  - HYPERTENSIVE CRISIS [None]
  - SPLENIC ARTERY ANEURYSM [None]
  - ARTERIOSCLEROSIS CORONARY ARTERY [None]
  - ANAEMIA OF CHRONIC DISEASE [None]
  - FEMUR FRACTURE [None]
  - RETINOPATHY HYPERTENSIVE [None]
  - RESPIRATORY DISTRESS [None]
  - INSOMNIA [None]
  - DRUG INEFFECTIVE [None]
  - CATARACT [None]
  - BACK PAIN [None]
  - FALL [None]
  - ABDOMINAL PAIN [None]
  - RESPIRATORY DISORDER [None]
  - MALIGNANT HYPERTENSION [None]
  - HOT FLUSH [None]
  - SPINAL DISORDER [None]
  - CARDIOMEGALY [None]
  - NAUSEA [None]
  - DIVERTICULUM [None]
  - ARTERIAL OCCLUSIVE DISEASE [None]
  - CONCUSSION [None]
  - ARTHRALGIA [None]
  - HYPOTHYROIDISM [None]
